FAERS Safety Report 9518748 (Version 3)
Quarter: 2013Q4

REPORT INFORMATION
  Report Type: Report from Study
  Country: CA (occurrence: CA)
  Receive Date: 20130912
  Receipt Date: 20131125
  Transmission Date: 20140711
  Serious: Yes (Death, Other)
  Sender: FDA-Public Use
  Company Number: CA-INCYTE CORPORATION-2012IN002612

PATIENT
  Age: 74 Year
  Sex: Female

DRUGS (5)
  1. JAKAVI [Suspect]
     Indication: MYELOFIBROSIS
     Dosage: 15 MG, BID
     Route: 048
     Dates: start: 20120830
  2. JAKAVI [Suspect]
     Dosage: 30 MG, (ALTERNATING DOSES OF 30MG ONE DAY AND 15 MG THE NEXT)
     Route: 048
  3. JAKAVI [Suspect]
     Dosage: 15 MG, (ALTERNATING DOSES OF 30 MG ONE DAY AND 15MG THE NEXT)
     Route: 048
     Dates: end: 20130305
  4. JAKAVI [Suspect]
     Dosage: 5 MG, BID
     Route: 048
  5. BABY ASPIRIN [Concomitant]
     Dosage: UNK
     Dates: end: 20130305

REACTIONS (9)
  - Death [Fatal]
  - Throat cancer [Unknown]
  - Platelet count decreased [Unknown]
  - Haemoglobin decreased [Unknown]
  - Red blood cell count decreased [Unknown]
  - Mass [Unknown]
  - Arthralgia [Unknown]
  - Musculoskeletal pain [Unknown]
  - Stomatitis [Unknown]
